FAERS Safety Report 16281688 (Version 1)
Quarter: 2019Q2

REPORT INFORMATION
  Report Type: Spontaneous
  Country: US (occurrence: US)
  Receive Date: 20190507
  Receipt Date: 20190507
  Transmission Date: 20190711
  Serious: No
  Sender: FDA-Public Use
  Company Number: US-PFIZER INC-2019188266

PATIENT
  Age: 56 Year
  Sex: Female

DRUGS (2)
  1. XANAX [Suspect]
     Active Substance: ALPRAZOLAM
     Dosage: UNK
  2. NORFLEX [Suspect]
     Active Substance: ORPHENADRINE CITRATE
     Dosage: UNK

REACTIONS (2)
  - Palpitations [Unknown]
  - Tachycardia [Unknown]
